FAERS Safety Report 7600609-8 (Version None)
Quarter: 2011Q3

REPORT INFORMATION
  Report Type: 
  Country: None (occurrence: None)
  Receive Date: 20110711
  Receipt Date: 20110707
  Transmission Date: 20111222
  Serious: Yes (Other)
  Sender: FDA-Public Use
  Company Number: ZA-PFIZER INC-2011153782

PATIENT

DRUGS (1)
  1. VARENICLINE TARTRATE [Suspect]
     Dosage: UNK

REACTIONS (3)
  - URTICARIA [None]
  - HYPERSENSITIVITY [None]
  - SWELLING [None]
